FAERS Safety Report 25304201 (Version 1)
Quarter: 2025Q2

REPORT INFORMATION
  Report Type: Spontaneous
  Country: US (occurrence: US)
  Receive Date: 20250513
  Receipt Date: 20250513
  Transmission Date: 20250716
  Serious: Yes (Other)
  Sender: COOPERSURGICAL
  Company Number: US-COOPERSURGICAL, INC.-2025CPS003651

PATIENT
  Age: 26 Year
  Sex: Female
  Weight: 68.027 kg

DRUGS (2)
  1. PARAGARD T 380A [Suspect]
     Active Substance: COPPER
     Route: 015
     Dates: start: 20100101
  2. BUPROPION [Concomitant]
     Active Substance: BUPROPION
     Dates: start: 20190501

REACTIONS (9)
  - Cervical polyp [Unknown]
  - Device breakage [Unknown]
  - Foreign body in reproductive tract [Unknown]
  - Complication of device removal [Unknown]
  - Embedded device [Unknown]
  - Emotional disorder [Unknown]
  - Psychological trauma [Unknown]
  - Procedural pain [Recovered/Resolved]
  - Discomfort [Recovered/Resolved]

NARRATIVE: CASE EVENT DATE: 20130101
